FAERS Safety Report 5932932-7 (Version None)
Quarter: 2008Q4

REPORT INFORMATION
  Report Type: 
  Country: None (occurrence: None)
  Receive Date: 20081028
  Receipt Date: 20081023
  Transmission Date: 20090506
  Serious: Yes (Disabling)
  Sender: FDA-Public Use
  Company Number: GB-MERCK-0810GBR00128

PATIENT
  Age: 89 Year
  Sex: Female

DRUGS (8)
  1. FOSAMAX [Suspect]
     Indication: OSTEOPOROSIS
     Route: 048
     Dates: start: 20070627, end: 20080801
  2. CALCIUM CARBONATE AND CHOLECALCIFEROL [Concomitant]
     Route: 048
  3. FUROSEMIDE [Concomitant]
     Route: 048
  4. NITROGLYCERIN [Concomitant]
     Route: 048
  5. LANSOPRAZOLE [Concomitant]
     Route: 048
  6. LOSARTAN POTASSIUM [Concomitant]
     Route: 048
  7. SIMVASTATIN [Concomitant]
     Route: 048
  8. VALPROATE SODIUM [Concomitant]
     Route: 048

REACTIONS (2)
  - EYE PAIN [None]
  - SCLERITIS [None]
